FAERS Safety Report 23390329 (Version 1)
Quarter: 2024Q1

REPORT INFORMATION
  Report Type: Spontaneous
  Country: FR (occurrence: FR)
  Receive Date: 20240111
  Receipt Date: 20240111
  Transmission Date: 20240410
  Serious: Yes (Other)
  Sender: FDA-Public Use
  Company Number: FR-AstraZeneca-2023A199744

PATIENT
  Sex: Female

DRUGS (5)
  1. ROSUVASTATIN [Suspect]
     Active Substance: ROSUVASTATIN
     Indication: Product used for unknown indication
     Dosage: UNK, TABLET
     Route: 048
  2. TICAGRELOR [Suspect]
     Active Substance: TICAGRELOR
     Indication: Product used for unknown indication
     Dosage: 90 MILLIGRAM
     Route: 048
     Dates: start: 20230830
  3. FLUVASTATIN [Suspect]
     Active Substance: FLUVASTATIN SODIUM
     Indication: Product used for unknown indication
     Dosage: UNK
     Route: 065
  4. COZAAR [Concomitant]
     Active Substance: LOSARTAN POTASSIUM
     Indication: Blood pressure measurement
     Dosage: 50 MILLIGRAM, BID
     Route: 065
  5. DIAMICRON [Concomitant]
     Indication: Diabetes mellitus
     Dosage: 60 MILLIGRAM, BID
     Route: 065

REACTIONS (20)
  - Muscular weakness [Unknown]
  - Monoplegia [Unknown]
  - Hypoaesthesia [Unknown]
  - Hypokinesia [Unknown]
  - Dizziness [Unknown]
  - Asthenia [Unknown]
  - Phlebitis [Unknown]
  - Balance disorder [Unknown]
  - Pain in extremity [Unknown]
  - Hypersensitivity [Unknown]
  - Abdominal distension [Unknown]
  - Amnesia [Unknown]
  - Diarrhoea [Unknown]
  - Headache [Unknown]
  - Chest discomfort [Unknown]
  - Swelling [Unknown]
  - Mouth swelling [Unknown]
  - Faeces discoloured [Unknown]
  - Ear pain [Unknown]
  - Facial paresis [Unknown]

NARRATIVE: CASE EVENT DATE: 20230830
